FAERS Safety Report 7629457-X (Version None)
Quarter: 2011Q3

REPORT INFORMATION
  Report Type: 
  Country: None (occurrence: None)
  Receive Date: 20110722
  Receipt Date: 20110714
  Transmission Date: 20111222
  Serious: Yes (Life-Threatening, Hospitalization)
  Sender: FDA-Public Use
  Company Number: US-JNJFOC-20110706054

PATIENT
  Age: 38 Year
  Sex: Male

DRUGS (3)
  1. ALL OTHER NON-THERAPEUTIC [Suspect]
     Indication: SUICIDE ATTEMPT
  2. ACETAMINOPHEN [Suspect]
     Indication: SUICIDE ATTEMPT
  3. ACETAMINOPHEN [Suspect]

REACTIONS (10)
  - INTENTIONAL OVERDOSE [None]
  - GASTROINTESTINAL NECROSIS [None]
  - ABDOMINAL PAIN [None]
  - HEPATIC ENZYME INCREASED [None]
  - RENAL IMPAIRMENT [None]
  - VOMITING [None]
  - CONFUSIONAL STATE [None]
  - ODYNOPHAGIA [None]
  - NAUSEA [None]
  - LETHARGY [None]
